FAERS Safety Report 13282138 (Version 2)
Quarter: 2017Q1

REPORT INFORMATION
  Report Type: Report from Study
  Country: US (occurrence: US)
  Receive Date: 20170301
  Receipt Date: 20170315
  Transmission Date: 20170428
  Serious: Yes (Hospitalization)
  Sender: FDA-Public Use
  Company Number: US-GILEAD-2017-0251926

PATIENT
  Age: 42 Year
  Sex: Female

DRUGS (19)
  1. SENSIPAR [Concomitant]
     Active Substance: CINACALCET HYDROCHLORIDE
  2. CLONIDINE. [Concomitant]
     Active Substance: CLONIDINE
  3. LEVONORGESTREL. [Concomitant]
     Active Substance: LEVONORGESTREL
  4. PROAIR HFA [Concomitant]
     Active Substance: ALBUTEROL SULFATE
  5. CLONAZEPAN [Concomitant]
     Active Substance: CLONAZEPAM
  6. NEXIUM [Concomitant]
     Active Substance: ESOMEPRAZOLE MAGNESIUM
  7. SEVELAMER [Concomitant]
     Active Substance: SEVELAMER
  8. TYVASO [Concomitant]
     Active Substance: TREPROSTINIL
  9. COUMADIN [Concomitant]
     Active Substance: WARFARIN SODIUM
  10. AMLODIPINE [Concomitant]
     Active Substance: AMLODIPINE BESYLATE
  11. HYDROXYCHLOROQUINE [Concomitant]
     Active Substance: HYDROXYCHLOROQUINE
  12. ALBUTEROL                          /00139501/ [Concomitant]
     Active Substance: ALBUTEROL
  13. PLAQUENIL                          /00072602/ [Concomitant]
     Active Substance: HYDROXYCHLOROQUINE DIPHOSPHATE
  14. UPTRAVI [Concomitant]
     Active Substance: SELEXIPAG
  15. CINACALCET [Concomitant]
     Active Substance: CINACALCET
  16. AMBRISENTAN [Suspect]
     Active Substance: AMBRISENTAN
     Indication: PRODUCT USED FOR UNKNOWN INDICATION
     Dosage: 10 MG, QD
     Route: 048
  17. ASA [Concomitant]
     Active Substance: ASPIRIN
  18. PREDNISONE. [Concomitant]
     Active Substance: PREDNISONE
  19. ZOLOFT [Concomitant]
     Active Substance: SERTRALINE HYDROCHLORIDE

REACTIONS (8)
  - Fatigue [Recovered/Resolved]
  - Swelling [Recovered/Resolved]
  - Cough [Recovered/Resolved]
  - Dizziness [Recovered/Resolved]
  - Dyspnoea [Unknown]
  - Dyspnoea [Recovered/Resolved]
  - Bronchitis [Recovered/Resolved]
  - Influenza [Recovered/Resolved]
